FAERS Safety Report 9968035 (Version 1)
Quarter: 2014Q1

REPORT INFORMATION
  Report Type: Report from Study
  Country: US (occurrence: US)
  Receive Date: 20140306
  Receipt Date: 20140306
  Transmission Date: 20141002
  Serious: No
  Sender: FDA-Public Use
  Company Number: US-ABBVIE-13P-163-1143525-00

PATIENT
  Age: 30 Year
  Sex: Female
  Weight: 99.88 kg

DRUGS (8)
  1. HUMIRA [Suspect]
     Indication: PSORIATIC ARTHROPATHY
     Dates: start: 201303, end: 201308
  2. HUMIRA [Suspect]
     Dates: start: 201308
  3. RISPERIDONE [Concomitant]
     Indication: BIPOLAR DISORDER
  4. VALIUM [Concomitant]
     Indication: ANXIETY
  5. PERCOCET [Concomitant]
     Indication: PAIN
     Dosage: PRN
  6. PHENERGAN [Concomitant]
     Indication: NAUSEA
     Dosage: PRN
  7. DEPAKOTE [Concomitant]
     Indication: MIGRAINE
  8. PROVENTIL [Concomitant]
     Indication: ASTHMA
     Dosage: PRN

REACTIONS (5)
  - Arthralgia [Recovering/Resolving]
  - Joint swelling [Recovered/Resolved]
  - Oropharyngeal pain [Not Recovered/Not Resolved]
  - Throat irritation [Not Recovered/Not Resolved]
  - Dysuria [Not Recovered/Not Resolved]
